FAERS Safety Report 18028913 (Version 1)
Quarter: 2020Q3

REPORT INFORMATION
  Report Type: Spontaneous
  Country: US (occurrence: US)
  Receive Date: 20200715
  Receipt Date: 20200715
  Transmission Date: 20201103
  Serious: No
  Sender: FDA-Public Use
  Company Number: US-009507513-2007USA004364

PATIENT
  Sex: Male

DRUGS (2)
  1. PREGNYL [Suspect]
     Active Substance: CHORIOGONADOTROPIN ALFA
     Dosage: PREGNYL INJ 10, DOSE: 0.5 MILLILITER, 3 TIMES PER WEEK (TIW)
  2. STERILE DILUENT (WATER) [Suspect]
     Active Substance: WATER
     Dosage: UNK

REACTIONS (3)
  - Product administration error [Unknown]
  - No adverse event [Unknown]
  - Product preparation error [Unknown]

NARRATIVE: CASE EVENT DATE: 2020
